FAERS Safety Report 5063608-9 (Version None)
Quarter: 2006Q3

REPORT INFORMATION
  Report Type: 
  Country: None (occurrence: None)
  Receive Date: 20060703
  Receipt Date: 20051114
  Transmission Date: 20061208
  Serious: No
  Sender: FDA-Public Use
  Company Number: 2005S1011081

PATIENT
  Age: 31 Year
  Sex: Female

DRUGS (4)
  1. CLOZAPINE [Suspect]
     Dosage: 400 MG;HS;ORAL
     Route: 048
     Dates: start: 20030101
  2. FLUOXETINE [Concomitant]
  3. HYDROCHLORIDE [Concomitant]
  4. QUETIAPINE FUMARATE [Concomitant]

REACTIONS (2)
  - GRANULOCYTOPENIA [None]
  - LEUKOPENIA [None]
